FAERS Safety Report 8559813-7 (Version None)
Quarter: 2012Q3

REPORT INFORMATION
  Report Type: 
  Country: None (occurrence: None)
  Receive Date: 20120802
  Receipt Date: 20120723
  Transmission Date: 20120928
  Serious: Yes (Hospitalization)
  Sender: FDA-Public Use
  Company Number: CH-PFIZER INC-2012181437

PATIENT
  Age: 87 Year
  Sex: Male

DRUGS (2)
  1. CORDARONE [Suspect]
     Indication: ATRIAL FIBRILLATION
     Dosage: 200 MG, DAILY (1-0-0)
     Route: 048
     Dates: end: 20120417
  2. CORDARONE [Suspect]
     Indication: CARDIAC FLUTTER

REACTIONS (2)
  - SYNCOPE [None]
  - SINUS BRADYCARDIA [None]
